FAERS Safety Report 4448700-1 (Version None)
Quarter: 2004Q3

REPORT INFORMATION
  Report Type: 
  Country: None (occurrence: None)
  Receive Date: 20040913
  Receipt Date: 20040830
  Transmission Date: 20050211
  Serious: No
  Sender: FDA-Public Use
  Company Number: 2004SE03533

PATIENT
  Age: 56 Year
  Sex: Male
  Weight: 85 kg

DRUGS (4)
  1. CRESTOR [Suspect]
     Indication: HYPERCHOLESTEROLAEMIA
     Dosage: 10 MG DAILY PO
     Route: 048
     Dates: start: 20040201
  2. LOGIMAT [Concomitant]
  3. CORVATARD [Concomitant]
  4. ASAFLOW [Concomitant]

REACTIONS (4)
  - BLOOD PROLACTIN INCREASED [None]
  - BLOOD TESTOSTERONE DECREASED [None]
  - GYNAECOMASTIA [None]
  - HYPERTROPHY BREAST [None]
